FAERS Safety Report 4756918-3 (Version None)
Quarter: 2005Q3

REPORT INFORMATION
  Report Type: 
  Country: None (occurrence: None)
  Receive Date: 20050830
  Receipt Date: 20050819
  Transmission Date: 20060218
  Serious: Yes (Death, Other)
  Sender: FDA-Public Use
  Company Number: JP-BRISTOL-MYERS SQUIBB COMPANY-13090410

PATIENT
  Age: 71 Year
  Sex: Female

DRUGS (6)
  1. ETOPOSIDE [Suspect]
     Indication: LYMPHOMA
     Dates: start: 20030601, end: 20030601
  2. CYCLOPHOSPHAMIDE [Suspect]
     Indication: LYMPHOMA
     Dates: start: 20030301, end: 20030301
  3. VINCRISTINE SULFATE [Suspect]
     Indication: LYMPHOMA
     Dates: start: 20030301, end: 20030301
  4. PIRARUBICIN HCL [Suspect]
     Indication: LYMPHOMA
     Dates: start: 20030301, end: 20030301
  5. RITUXIMAB [Suspect]
     Indication: LYMPHOMA
  6. PREDNISOLONE [Suspect]
     Indication: LYMPHOMA
     Dates: start: 20030301, end: 20030301

REACTIONS (4)
  - CONDITION AGGRAVATED [None]
  - DISSEMINATED INTRAVASCULAR COAGULATION [None]
  - PERITONITIS [None]
  - WHITE BLOOD CELL COUNT DECREASED [None]
